FAERS Safety Report 5592180-X (Version None)
Quarter: 2008Q1

REPORT INFORMATION
  Report Type: 
  Country: None (occurrence: None)
  Receive Date: 20080115
  Receipt Date: 20070619
  Transmission Date: 20080703
  Serious: No
  Sender: FDA-Public Use
  Company Number: US-ABBOTT-07P-163-0406492-00

PATIENT
  Sex: Female
  Weight: 67.192 kg

DRUGS (1)
  1. ADVICOR [Suspect]
     Indication: BLOOD TRIGLYCERIDES INCREASED
     Route: 048
     Dates: start: 20070512, end: 20070519

REACTIONS (7)
  - BLISTER [None]
  - DERMATITIS BULLOUS [None]
  - GLUCOSE TOLERANCE DECREASED [None]
  - OEDEMA PERIPHERAL [None]
  - RASH MACULO-PAPULAR [None]
  - RASH PRURITIC [None]
  - URTICARIA [None]
